FAERS Safety Report 9690235 (Version 2)
Quarter: 2014Q1

REPORT INFORMATION
  Report Type: Report from Study
  Country: CA (occurrence: CA)
  Receive Date: 20131115
  Receipt Date: 20140205
  Transmission Date: 20141002
  Serious: Yes (Hospitalization, Other)
  Sender: FDA-Public Use
  Company Number: CA-ROCHE-1302675

PATIENT
  Age: 54 Year
  Sex: Female

DRUGS (13)
  1. PEGASYS [Suspect]
     Indication: CHRONIC HEPATITIS C
     Route: 058
     Dates: start: 20110120, end: 20111019
  2. PEGASYS [Suspect]
     Route: 058
     Dates: start: 20130528, end: 20140130
  3. COPEGUS [Suspect]
     Indication: CHRONIC HEPATITIS C
     Dosage: 42 TABLETS/WEEK
     Route: 048
     Dates: start: 20110120, end: 20111019
  4. COPEGUS [Suspect]
     Dosage: 42 TABLETS/WEEK
     Route: 048
     Dates: start: 20130528, end: 20140130
  5. VICTRELIS [Suspect]
     Indication: CHRONIC HEPATITIS C
     Dosage: COMPLETED THERAPY ON UNKNOWN DATE
     Route: 048
  6. VICTRELIS [Suspect]
     Dosage: COMPLETED THERAPY ON UNKNOWN DATE
     Route: 048
  7. ALPRAZOLAM [Concomitant]
  8. HYZAAR [Concomitant]
  9. CIPRALEX [Concomitant]
  10. MORPHINE [Concomitant]
  11. TECTA [Concomitant]
  12. XANAX [Concomitant]
  13. PARIET [Concomitant]

REACTIONS (5)
  - Aneurysm [Unknown]
  - Pain [Not Recovered/Not Resolved]
  - Visual impairment [Not Recovered/Not Resolved]
  - Headache [Not Recovered/Not Resolved]
  - No therapeutic response [Unknown]
